FAERS Safety Report 5820575-5 (Version None)
Quarter: 2008Q3

REPORT INFORMATION
  Report Type: 
  Country: None (occurrence: None)
  Receive Date: 20080724
  Receipt Date: 20071114
  Transmission Date: 20090109
  Serious: No
  Sender: FDA-Public Use
  Company Number: A0694524A

PATIENT
  Age: 63 Year
  Sex: Female

DRUGS (10)
  1. AVANDIA [Suspect]
     Dosage: 4MG TWICE PER DAY
     Route: 048
     Dates: start: 20060101
  2. LISINOPRIL [Concomitant]
  3. ATENOLOL [Concomitant]
  4. GLIPIZIDE [Concomitant]
  5. FUROSEMIDE [Concomitant]
  6. LEVOTHYROXINE SODIUM [Concomitant]
  7. FAMOTIDINE [Concomitant]
  8. METFORMIN [Concomitant]
  9. CYCLOBENZAPRINE HCL [Concomitant]
  10. LORAZEPAM [Concomitant]

REACTIONS (4)
  - DYSPNOEA [None]
  - ELECTROCARDIOGRAM CHANGE [None]
  - HYPOAESTHESIA [None]
  - OEDEMA PERIPHERAL [None]
